FAERS Safety Report 11994887 (Version 2)
Quarter: 2016Q1

REPORT INFORMATION
  Report Type: Report from Study
  Country: AR (occurrence: AR)
  Receive Date: 20160203
  Receipt Date: 20160307
  Transmission Date: 20160526
  Serious: Yes (Other)
  Sender: FDA-Public Use
  Company Number: PHHY2016AR014195

PATIENT
  Sex: Female

DRUGS (1)
  1. DIOVAN [Suspect]
     Active Substance: VALSARTAN
     Indication: BLOOD PRESSURE ABNORMAL
     Dosage: 0.5 DF, QD (SPLITTED THE 160 MG TABLET INTO HALF) FROM 4 YEARS
     Route: 065

REACTIONS (4)
  - Wrong technique in product usage process [Unknown]
  - Rheumatoid arthritis [Recovered/Resolved with Sequelae]
  - Memory impairment [Recovering/Resolving]
  - Arthralgia [Unknown]
